FAERS Safety Report 6403308-3 (Version None)
Quarter: 2009Q4

REPORT INFORMATION
  Report Type: 
  Country: None (occurrence: None)
  Receive Date: 20091016
  Receipt Date: 20090709
  Transmission Date: 20100525
  Serious: No
  Sender: FDA-Public Use
  Company Number: A0779181A

PATIENT
  Age: 69 Year
  Sex: Female

DRUGS (3)
  1. CEFTIN [Suspect]
     Dosage: 250MG TWICE PER DAY
     Route: 048
     Dates: start: 20090415
  2. UNKNOWN MEDICATION [Suspect]
  3. LISINOPRIL [Concomitant]

REACTIONS (3)
  - DIZZINESS [None]
  - PARAESTHESIA [None]
  - SINUS HEADACHE [None]
